FAERS Safety Report 15626497 (Version 1)
Quarter: 2018Q4

REPORT INFORMATION
  Report Type: Spontaneous
  Country: IE (occurrence: IE)
  Receive Date: 20181116
  Receipt Date: 20181116
  Transmission Date: 20190205
  Serious: Yes (Other)
  Sender: FDA-Public Use
  Company Number: GB-ASTRAZENECA-2018SF50395

PATIENT
  Sex: Female
  Weight: 1.5 kg

DRUGS (14)
  1. PROPOFOL. [Suspect]
     Active Substance: PROPOFOL
     Indication: FOETAL EXPOSURE DURING PREGNANCY
     Dosage: MATERNAL DOSE: 4-6 UG/ML
     Route: 064
  2. PARACETAMOL [Suspect]
     Active Substance: ACETAMINOPHEN
     Indication: FOETAL EXPOSURE DURING PREGNANCY
     Dosage: UNK
     Route: 064
  3. SODIUM CITRATE. [Suspect]
     Active Substance: SODIUM CITRATE
     Indication: FOETAL EXPOSURE DURING PREGNANCY
     Dosage: MATERNAL DOSE: 30 ML
     Route: 064
  4. OMEPRAZOLE. [Suspect]
     Active Substance: OMEPRAZOLE
     Indication: FOETAL EXPOSURE DURING PREGNANCY
     Dosage: MATERNAL DOSE: 20 MG DAILY
     Route: 064
  5. DEXMEDETOMIDINE. [Suspect]
     Active Substance: DEXMEDETOMIDINE
     Indication: FOETAL EXPOSURE DURING PREGNANCY
     Dosage: MATERNAL DOSE: 0.8 UG/KG OVER 10 MINUTES
     Route: 064
  6. DICLOFENAC [Suspect]
     Active Substance: DICLOFENAC
     Indication: FOETAL EXPOSURE DURING PREGNANCY
     Dosage: UNK
     Route: 064
  7. OXYGEN. [Suspect]
     Active Substance: OXYGEN
     Indication: FOETAL EXPOSURE DURING PREGNANCY
     Dosage: MATERNAL DOSE: 50 L/MIN
     Route: 064
  8. LEVOBUPIVACAINE [Suspect]
     Active Substance: LEVOBUPIVACAINE
     Indication: FOETAL EXPOSURE DURING PREGNANCY
     Dosage: MATERNAL DOSE: 30 ML
     Route: 064
  9. PROPOFOL. [Suspect]
     Active Substance: PROPOFOL
     Indication: FOETAL EXPOSURE DURING PREGNANCY
     Dosage: MATERNAL DOSE: 180 MG
     Route: 064
  10. LIDOCAINE HYDROCHLORIDE. [Suspect]
     Active Substance: LIDOCAINE HYDROCHLORIDE
     Indication: FOETAL EXPOSURE DURING PREGNANCY
     Dosage: UNK
     Route: 064
  11. ROCURONIUM [Suspect]
     Active Substance: ROCURONIUM BROMIDE
     Indication: FOETAL EXPOSURE DURING PREGNANCY
     Dosage: MATERNAL DOSE: 1 MG/KG
     Route: 064
  12. RANITIDINE. [Suspect]
     Active Substance: RANITIDINE
     Indication: FOETAL EXPOSURE DURING PREGNANCY
     Dosage: MATERNAL DOSE: 150 MG
     Route: 064
  13. ALPRAZOLAM. [Suspect]
     Active Substance: ALPRAZOLAM
     Indication: FOETAL EXPOSURE DURING PREGNANCY
     Dosage: MATERNAL DOSE: 250 MCG, BID
     Route: 064
  14. EPINEPHRINE. [Suspect]
     Active Substance: EPINEPHRINE
     Indication: FOETAL EXPOSURE DURING PREGNANCY
     Dosage: MATERNAL DOSE: 15 ML
     Route: 064

REACTIONS (3)
  - Premature baby [Unknown]
  - Low birth weight baby [Unknown]
  - Foetal exposure during pregnancy [Unknown]
